FAERS Safety Report 5080818-5 (Version None)
Quarter: 2006Q3

REPORT INFORMATION
  Report Type: 
  Country: None (occurrence: None)
  Receive Date: 20060809
  Receipt Date: 20060724
  Transmission Date: 20061208
  Serious: Yes (Death, Other)
  Sender: FDA-Public Use
  Company Number: 2006AL001950

PATIENT
  Age: 76 Year
  Sex: Male

DRUGS (7)
  1. DICLOFENAC [Suspect]
     Indication: RHEUMATOID ARTHRITIS
     Dosage: 75 MG; BID; PO
     Route: 048
     Dates: start: 20060116, end: 20060213
  2. IBUPROFEN [Suspect]
     Dosage: 400 MG; TID; PO
     Route: 048
     Dates: start: 20050701, end: 20060116
  3. ALENDRONIC ACID [Concomitant]
  4. CO-DYDRAMOL [Concomitant]
  5. ITRACONAZOLE [Concomitant]
  6. DOXYCYCLINE [Concomitant]
  7. PREDNISOLONE [Concomitant]

REACTIONS (1)
  - GASTRIC ULCER PERFORATION [None]
